FAERS Safety Report 8592496-9 (Version None)
Quarter: 2012Q3

REPORT INFORMATION
  Report Type: 
  Country: None (occurrence: None)
  Receive Date: 20120814
  Receipt Date: 20120808
  Transmission Date: 20120928
  Serious: Yes (Hospitalization, Other)
  Sender: FDA-Public Use
  Company Number: JP-009507513-2012SP017037

PATIENT

DRUGS (13)
  1. REBETOL [Suspect]
     Dosage: 400 MG, QD
     Route: 048
     Dates: start: 20120516, end: 20120529
  2. EPADEL [Concomitant]
     Indication: HYPERLIPIDAEMIA
     Dosage: 1800 MG, QD
     Route: 048
  3. REBETOL [Suspect]
     Indication: HEPATITIS C
     Dosage: 400 MG, QD
     Route: 048
     Dates: start: 20120125, end: 20120228
  4. SODIUM FERROUS CITRATE [Concomitant]
     Indication: IRON DEFICIENCY ANAEMIA
     Dosage: FORMULATION: POR
     Route: 048
  5. PEGINTERFERON ALFA-2B [Suspect]
     Indication: HEPATITIS C
     Dosage: 1.5 ?G/KG, QW
     Route: 058
     Dates: start: 20120125, end: 20120215
  6. PEGINTERFERON ALFA-2B [Suspect]
     Dosage: 1.2 ?G/KG, QW
     Route: 058
     Dates: start: 20120222
  7. TELAVIC [Suspect]
     Indication: HEPATITIS C
     Dosage: 1500 MG, QD
     Route: 048
     Dates: start: 20120125
  8. REBETOL [Suspect]
     Dosage: 200 MG, QD
     Route: 048
     Dates: start: 20120229, end: 20120515
  9. REBETOL [Suspect]
     Dosage: 600 MG, QD
     Route: 048
     Dates: start: 20120530, end: 20120704
  10. CLARITIN REDITABS [Concomitant]
     Indication: PROPHYLAXIS
     Dosage: 10 MG, QD
     Route: 048
     Dates: end: 20120327
  11. PURSENNID (SENNA) [Concomitant]
     Indication: CONSTIPATION
     Dosage: FORMULATION: POR
     Route: 048
  12. LIVALO [Concomitant]
     Indication: HYPERLIPIDAEMIA
     Dosage: FORMULATION: POR
     Route: 048
  13. LIVALO [Concomitant]
     Dosage: 2 MG, QD

REACTIONS (2)
  - ANAEMIA [None]
  - RASH [None]
